FAERS Safety Report 5970002-2 (Version None)
Quarter: 2008Q4

REPORT INFORMATION
  Report Type: 
  Country: None (occurrence: None)
  Receive Date: 20081126
  Receipt Date: 20081117
  Transmission Date: 20090506
  Serious: Yes (Hospitalization)
  Sender: FDA-Public Use
  Company Number: US-PFIZER INC-2008098072

PATIENT
  Age: 35 Year
  Sex: Female
  Weight: 83 kg

DRUGS (14)
  1. HEPARIN SODIUM [Suspect]
     Indication: THROMBOSIS PROPHYLAXIS
     Route: 058
  2. HEPARIN SODIUM [Suspect]
     Route: 042
  3. METOPROLOL TARTRATE [Concomitant]
     Route: 048
  4. LISINOPRIL [Concomitant]
     Dosage: DAILY DOSE:5MG-FREQ:DAILY
     Route: 048
  5. FUROSEMIDE [Concomitant]
     Route: 048
  6. POTASSIUM CHLORIDE [Concomitant]
     Route: 048
  7. ACETYLSALICYLIC ACID SRT [Concomitant]
     Dosage: DAILY DOSE:325MG-FREQ:DAILY
     Route: 048
  8. LANSOPRAZOLE [Concomitant]
     Indication: STRESS ULCER
     Dosage: DAILY DOSE:30MG-FREQ:DAILY
     Route: 048
  9. DOCUSATE SODIUM [Concomitant]
     Route: 048
  10. HYDROCODONE BITARTRATE [Concomitant]
     Indication: PAIN
     Dosage: TEXT:5-10 MG-FREQ:EVERY 4-6 HOURS AS NEEDED
     Route: 048
  11. ACETAMINOPHEN [Concomitant]
     Indication: PAIN
     Dosage: TEXT:500-1000 MG-FREQ:EVERY 4-6 HOURS AS NEEDED
     Route: 048
  12. MORPHINE SULFATE [Concomitant]
     Indication: PAIN
     Dosage: TEXT:1-2 MG-FREQ:EVERY 1-2 HOURS AS NEEDED
     Route: 042
  13. ONDASETRON [Concomitant]
     Indication: NAUSEA
  14. ONDASETRON [Concomitant]
     Indication: VOMITING

REACTIONS (9)
  - ANTIBODY TEST POSITIVE [None]
  - ARTERIAL THROMBOSIS [None]
  - CEREBROVASCULAR ACCIDENT [None]
  - HEPATIC INFARCTION [None]
  - INTRACARDIAC THROMBUS [None]
  - MYOCARDIAL INFARCTION [None]
  - PULMONARY EMBOLISM [None]
  - RENAL INFARCT [None]
  - SPLENIC INFARCTION [None]
